FAERS Safety Report 11701322 (Version 1)
Quarter: 2015Q4

REPORT INFORMATION
  Report Type: Spontaneous
  Country: DE (occurrence: DE)
  Receive Date: 20151105
  Receipt Date: 20151105
  Transmission Date: 20160304
  Serious: Yes (Hospitalization)
  Sender: FDA-Public Use
  Company Number: DE-AKORN PHARMACEUTICALS-2015AKN00655

PATIENT
  Sex: Female

DRUGS (1)
  1. ZIOPTAN [Suspect]
     Active Substance: TAFLUPROST
     Indication: GLAUCOMA
     Route: 047

REACTIONS (1)
  - Hypertension [Unknown]
